FAERS Safety Report 19142864 (Version 2)
Quarter: 2021Q3

REPORT INFORMATION
  Report Type: Spontaneous
  Country: US (occurrence: US)
  Receive Date: 20210415
  Receipt Date: 20210716
  Transmission Date: 20211014
  Serious: Yes (Other)
  Sender: FDA-Public Use
  Company Number: US-GILEAD-2021-0525252

PATIENT
  Age: 49 Year
  Sex: Female

DRUGS (4)
  1. TRUVADA [Suspect]
     Active Substance: EMTRICITABINE\TENOFOVIR DISOPROXIL FUMARATE
     Indication: HIV INFECTION
     Dosage: UNK
     Route: 048
     Dates: start: 20130817, end: 20171102
  2. DESCOVY [Concomitant]
     Active Substance: EMTRICITABINE\TENOFOVIR ALAFENAMIDE FUMARATE
  3. KALETRA [Concomitant]
     Active Substance: LOPINAVIR\RITONAVIR
  4. VIREAD [Suspect]
     Active Substance: TENOFOVIR DISOPROXIL FUMARATE
     Indication: HIV INFECTION
     Dosage: UNK
     Route: 048
     Dates: start: 200907, end: 201907

REACTIONS (9)
  - Anxiety [Unknown]
  - Pain [Unknown]
  - Anhedonia [Unknown]
  - Chronic kidney disease [Unknown]
  - Osteopenia [Not Recovered/Not Resolved]
  - Renal impairment [Not Recovered/Not Resolved]
  - Emotional distress [Unknown]
  - Bone density decreased [Unknown]
  - Lower limb fracture [Recovered/Resolved]

NARRATIVE: CASE EVENT DATE: 20161116
